FAERS Safety Report 9383078 (Version 1)
Quarter: 2013Q3

REPORT INFORMATION
  Report Type: Spontaneous
  Country: US (occurrence: US)
  Receive Date: 20130704
  Receipt Date: 20130704
  Transmission Date: 20140515
  Serious: No
  Sender: FDA-Public Use
  Company Number: US-ASTRAZENECA-2013SE48433

PATIENT
  Age: 65 Year
  Sex: Female

DRUGS (4)
  1. SYMBICORT [Suspect]
     Route: 055
     Dates: end: 201306
  2. SYMBICORT [Suspect]
     Route: 055
  3. CELEXA [Concomitant]
  4. HYDROCODONE [Concomitant]

REACTIONS (2)
  - Malaise [Unknown]
  - Drug dose omission [Unknown]
